FAERS Safety Report 20746625 (Version 1)
Quarter: 2022Q2

REPORT INFORMATION
  Report Type: Spontaneous
  Country: US (occurrence: None)
  Receive Date: 20220425
  Receipt Date: 20220425
  Transmission Date: 20220720
  Serious: No
  Sender: FDA-Public Use
  Company Number: None

PATIENT
  Sex: Female

DRUGS (1)
  1. IMATINIB [Suspect]
     Active Substance: IMATINIB
     Indication: Gastrointestinal stromal tumour
     Dosage: FREQUENCY : DAILY;?
     Route: 048
     Dates: start: 20210923

REACTIONS (6)
  - Chronic obstructive pulmonary disease [None]
  - Periorbital swelling [None]
  - Hepatic neoplasm [None]
  - Nausea [None]
  - Vomiting [None]
  - Contusion [None]
